FAERS Safety Report 12936237 (Version 1)
Quarter: 2016Q4

REPORT INFORMATION
  Report Type: Spontaneous
  Country: US (occurrence: US)
  Receive Date: 20161112
  Receipt Date: 20161112
  Transmission Date: 20170207
  Serious: Yes (Other)
  Sender: FDA-Public Use
  Company Number: None

PATIENT
  Age: 74 Year
  Sex: Female
  Weight: 49.5 kg

DRUGS (4)
  1. NORFENON (PROPAFENONE) [Concomitant]
  2. RECLAST [Suspect]
     Active Substance: ZOLEDRONIC ACID
     Indication: OSTEOPOROSIS
     Dosage: ?          OTHER ROUTE:INFUSION?
     Dates: start: 20160502
  3. DAILY VITAMIN PLUS CITRICAL [Concomitant]
  4. CONCOR (BISOPROLOL) [Concomitant]

REACTIONS (3)
  - Palpitations [None]
  - Extrasystoles [None]
  - Heart rate irregular [None]

NARRATIVE: CASE EVENT DATE: 20161111
